FAERS Safety Report 25935003 (Version 2)
Quarter: 2025Q4

REPORT INFORMATION
  Report Type: Spontaneous
  Country: TR (occurrence: TR)
  Receive Date: 20251017
  Receipt Date: 20251030
  Transmission Date: 20260118
  Serious: Yes (Other)
  Sender: ACCORD
  Company Number: TR-MLMSERVICE-20250926-PI656467-00194-1

PATIENT
  Age: 53 Year
  Sex: Female

DRUGS (23)
  1. LETROZOLE [Suspect]
     Active Substance: LETROZOLE
     Indication: Invasive lobular breast carcinoma
     Route: 048
  2. GOSERELIN [Suspect]
     Active Substance: GOSERELIN
     Indication: Invasive lobular breast carcinoma
     Route: 058
  3. DENOSUMAB [Suspect]
     Active Substance: DENOSUMAB
     Indication: Invasive lobular breast carcinoma
     Route: 058
  4. RIBOCICLIB [Suspect]
     Active Substance: RIBOCICLIB
     Indication: Invasive lobular breast carcinoma
     Route: 048
  5. GOSERELIN [Suspect]
     Active Substance: GOSERELIN
     Indication: Hormone receptor positive HER2 negative breast cancer
     Route: 058
  6. LETROZOLE [Suspect]
     Active Substance: LETROZOLE
     Indication: Metastases to lymph nodes
     Route: 048
  7. LETROZOLE [Suspect]
     Active Substance: LETROZOLE
     Indication: Metastases to liver
     Route: 048
  8. LETROZOLE [Suspect]
     Active Substance: LETROZOLE
     Indication: Metastases to bone
     Route: 048
  9. LETROZOLE [Suspect]
     Active Substance: LETROZOLE
     Indication: Malignant ascites
     Route: 048
  10. LETROZOLE [Suspect]
     Active Substance: LETROZOLE
     Indication: Hormone receptor positive HER2 negative breast cancer
     Route: 048
  11. GOSERELIN [Suspect]
     Active Substance: GOSERELIN
     Indication: Metastases to lymph nodes
     Route: 058
  12. GOSERELIN [Suspect]
     Active Substance: GOSERELIN
     Indication: Metastases to liver
     Route: 058
  13. GOSERELIN [Suspect]
     Active Substance: GOSERELIN
     Indication: Metastases to bone
     Route: 058
  14. GOSERELIN [Suspect]
     Active Substance: GOSERELIN
     Indication: Malignant ascites
     Route: 058
  15. GOSERELIN [Suspect]
     Active Substance: GOSERELIN
     Indication: Metastases to breast
     Route: 058
  16. RIBOCICLIB [Suspect]
     Active Substance: RIBOCICLIB
     Indication: Metastases to lymph nodes
     Route: 048
  17. RIBOCICLIB [Suspect]
     Active Substance: RIBOCICLIB
     Indication: Metastases to liver
     Route: 048
  18. RIBOCICLIB [Suspect]
     Active Substance: RIBOCICLIB
     Indication: Metastases to bone
     Route: 048
  19. RIBOCICLIB [Suspect]
     Active Substance: RIBOCICLIB
     Indication: Malignant ascites
     Route: 048
  20. RIBOCICLIB [Suspect]
     Active Substance: RIBOCICLIB
     Indication: Metastases to breast
     Route: 048
  21. LETROZOLE [Suspect]
     Active Substance: LETROZOLE
     Indication: Invasive lobular breast carcinoma
     Route: 048
  22. LETROZOLE [Suspect]
     Active Substance: LETROZOLE
     Indication: Hormone receptor positive HER2 negative breast cancer
     Route: 048
  23. RIBOCICLIB [Suspect]
     Active Substance: RIBOCICLIB
     Indication: Hormone receptor positive HER2 negative breast cancer
     Route: 048

REACTIONS (2)
  - Neutropenia [Recovering/Resolving]
  - Anaemia [Recovering/Resolving]
